FAERS Safety Report 24388328 (Version 1)
Quarter: 2024Q4

REPORT INFORMATION
  Report Type: Spontaneous
  Country: HU (occurrence: None)
  Receive Date: 20241002
  Receipt Date: 20241002
  Transmission Date: 20250114
  Serious: Yes (Death, Life-Threatening, Other)
  Sender: INFORLIFE
  Company Number: HU-INFO-20240299

PATIENT
  Age: 51 Year
  Sex: Male

DRUGS (1)
  1. ACETAMINOPHEN [Suspect]
     Active Substance: ACETAMINOPHEN

REACTIONS (3)
  - Drug-induced liver injury [Fatal]
  - Drug half-life increased [Fatal]
  - Metabolic acidosis [Fatal]
